FAERS Safety Report 10763535 (Version 2)
Quarter: 2015Q1

REPORT INFORMATION
  Report Type: Spontaneous
  Country: US (occurrence: US)
  Receive Date: 20150204
  Receipt Date: 20150204
  Transmission Date: 20150721
  Serious: Yes (Hospitalization, Other)
  Sender: FDA-Public Use
  Company Number: US-GLAXOSMITHKLINE-US2015012585

PATIENT
  Sex: Female

DRUGS (3)
  1. ZOVIRAX [Concomitant]
     Active Substance: ACYCLOVIR
  2. LOVAZA [Suspect]
     Active Substance: OMEGA-3-ACID ETHYL ESTERS
     Indication: BLOOD CHOLESTEROL
     Dosage: 1 G, BID
     Route: 065
     Dates: start: 2011, end: 20131118
  3. VITAMIN D [Concomitant]
     Active Substance: CHOLECALCIFEROL

REACTIONS (5)
  - Hernia repair [Unknown]
  - Therapeutic response unexpected [Unknown]
  - Memory impairment [Unknown]
  - Abdominal hernia [Unknown]
  - Sepsis [Unknown]

NARRATIVE: CASE EVENT DATE: 2013
